FAERS Safety Report 6534139-1 (Version None)
Quarter: 2010Q1

REPORT INFORMATION
  Report Type: 
  Country: None (occurrence: None)
  Receive Date: 20100112
  Receipt Date: 20100104
  Transmission Date: 20100710
  Serious: Yes (Other)
  Sender: FDA-Public Use
  Company Number: AU-NOVOPROD-302544

PATIENT
  Age: 19 Year
  Sex: Male

DRUGS (8)
  1. NOVOSEVEN [Suspect]
     Indication: HAEMORRHAGE
     Dosage: 20 UG/KG, UNK
  2. NOVOSEVEN [Suspect]
     Indication: COAGULOPATHY
  3. RED BLOOD CELLS [Concomitant]
     Indication: COAGULOPATHY
     Dosage: 6 U, UNK
  4. RED BLOOD CELLS [Concomitant]
     Indication: HAEMORRHAGE
  5. PLASMA [Concomitant]
     Indication: COAGULOPATHY
     Dosage: 9 U, UNK
  6. PLASMA [Concomitant]
     Indication: HAEMORRHAGE
  7. PLATELETS [Concomitant]
     Indication: COAGULOPATHY
     Dosage: 8 U, UNK
  8. PLATELETS [Concomitant]
     Indication: HAEMORRHAGE

REACTIONS (3)
  - JUGULAR VEIN THROMBOSIS [None]
  - THROMBOSIS IN DEVICE [None]
  - VENOUS THROMBOSIS LIMB [None]
